FAERS Safety Report 6715540-X (Version None)
Quarter: 2010Q2

REPORT INFORMATION
  Report Type: 
  Country: None (occurrence: None)
  Receive Date: 20100507
  Receipt Date: 20100429
  Transmission Date: 20101027
  Serious: Yes (Death, Hospitalization, Other)
  Sender: FDA-Public Use
  Company Number: US-ROCHE-687844

PATIENT
  Sex: Male
  Weight: 78.9 kg

DRUGS (13)
  1. CAPECITABINE [Suspect]
     Route: 048
     Dates: start: 20091215, end: 20100112
  2. OXALIPLATIN [Suspect]
     Dosage: FREQUENCY: DAY 1, DAY 15
     Route: 042
     Dates: start: 20091215, end: 20100112
  3. MIRALAX [Concomitant]
     Indication: CONSTIPATION
     Route: 048
  4. BENADRYL [Concomitant]
     Route: 048
  5. OXYCONTIN [Concomitant]
     Indication: PAIN
     Route: 048
  6. DILAUDID [Concomitant]
     Indication: BREAKTHROUGH PAIN
     Dosage: AS NECESSARY
     Route: 048
  7. OXYCODONE HCL [Concomitant]
     Indication: BREAKTHROUGH PAIN
     Dosage: AS NECESSARY
  8. RESTORIL [Concomitant]
     Indication: INSOMNIA
     Dosage: DOSE: 15 MG 1-2 EVERY NIGHT AS NECESSARY
     Route: 048
  9. XANAX [Concomitant]
     Indication: ANXIETY
     Dosage: AS NECESSARY
     Route: 048
  10. ZOFRAN [Concomitant]
     Dosage: DOSE: 1/1 TABLET EVERY 8 HOURS AS NECESSARY
     Route: 048
  11. SENOKOT [Concomitant]
     Indication: CONSTIPATION
     Route: 048
  12. ZOLOFT [Concomitant]
     Indication: DEPRESSION
     Route: 048
  13. LACTULOSE [Concomitant]
     Indication: CONSTIPATION
     Dosage: AS NECESSARY UNTIL BOWEL MOVEMENT
     Route: 048

REACTIONS (6)
  - DEHYDRATION [None]
  - HYPERBILIRUBINAEMIA [None]
  - MALIGNANT NEOPLASM PROGRESSION [None]
  - NAUSEA [None]
  - PALMAR-PLANTAR ERYTHRODYSAESTHESIA SYNDROME [None]
  - VOMITING [None]
